FAERS Safety Report 6226724-1 (Version None)
Quarter: 2009Q2

REPORT INFORMATION
  Report Type: 
  Country: None (occurrence: None)
  Receive Date: 20090612
  Receipt Date: 20090608
  Transmission Date: 20091009
  Serious: Yes (Death)
  Sender: FDA-Public Use
  Company Number: FR-ROCHE-624920

PATIENT
  Age: 41 Year
  Sex: Female
  Weight: 72 kg

DRUGS (2)
  1. PEG-INTERFERON ALFA 2A (RO 25-8310) [Suspect]
     Route: 058
     Dates: start: 20080314, end: 20081204
  2. RIBAVIRIN [Suspect]
     Route: 048
     Dates: start: 20080314, end: 20081204

REACTIONS (1)
  - SUDDEN CARDIAC DEATH [None]
